FAERS Safety Report 17725795 (Version 2)
Quarter: 2020Q2

REPORT INFORMATION
  Report Type: Spontaneous
  Country: US (occurrence: US)
  Receive Date: 20200429
  Receipt Date: 20200504
  Transmission Date: 20200714
  Serious: Yes (Other)
  Sender: FDA-Public Use
  Company Number: US-PFIZER INC-2020167839

PATIENT
  Sex: Female

DRUGS (3)
  1. PREMARIN [Suspect]
     Active Substance: ESTROGENS, CONJUGATED
     Indication: HOT FLUSH
     Dosage: 0.625 MG, EVERY 3 DAYS
  2. PROPYLENE GLYCOL [Suspect]
     Active Substance: PROPYLENE GLYCOL
  3. PREMARIN [Suspect]
     Active Substance: ESTROGENS, CONJUGATED
     Indication: BLOOD PRESSURE ABNORMAL
     Dosage: 0.625 MG, DAILY

REACTIONS (10)
  - Dyspnoea [Unknown]
  - Pain [Unknown]
  - Skin lesion [Unknown]
  - Chest pain [Unknown]
  - Rash [Unknown]
  - Hypertension [Unknown]
  - Allergic reaction to excipient [Unknown]
  - Pruritus [Unknown]
  - Insomnia [Unknown]
  - Skin haemorrhage [Unknown]
